FAERS Safety Report 4813619-0 (Version None)
Quarter: 2005Q4

REPORT INFORMATION
  Report Type: 
  Country: None (occurrence: None)
  Receive Date: 20051028
  Receipt Date: 20050711
  Transmission Date: 20060501
  Serious: Yes (Death, Other)
  Sender: FDA-Public Use
  Company Number: GB-AVENTIS-200511917EU

PATIENT
  Age: 86 Year
  Sex: Female
  Weight: 55 kg

DRUGS (7)
  1. ENOXAPARIN SODIUM [Suspect]
     Indication: MYOCARDIAL INFARCTION
     Route: 058
     Dates: start: 20050401, end: 20050406
  2. BISOPROLOL [Concomitant]
     Route: 048
     Dates: start: 20050403
  3. ATORVASTATIN CALCIUM [Concomitant]
     Route: 048
  4. ASPIRIN [Concomitant]
     Route: 048
  5. CANDESARTAN [Concomitant]
     Route: 048
  6. FRUSEMIDE [Concomitant]
     Route: 048
     Dates: start: 20050331
  7. RAMIPRIL [Concomitant]

REACTIONS (2)
  - MYOCARDIAL ISCHAEMIA [None]
  - RETROPERITONEAL HAEMORRHAGE [None]
